FAERS Safety Report 4914795-1 (Version None)
Quarter: 2006Q1

REPORT INFORMATION
  Report Type: 
  Country: None (occurrence: None)
  Receive Date: 20060113
  Receipt Date: 20051021
  Transmission Date: 20060701
  Serious: No
  Sender: FDA-Public Use
  Company Number: 2005SP003620

PATIENT
  Age: 89 Year
  Sex: Female
  Weight: 57.6068 kg

DRUGS (5)
  1. LUNESTA [Suspect]
     Indication: MIDDLE INSOMNIA
     Dosage: 3 MG;HS;ORAL
     Route: 048
     Dates: start: 20050929, end: 20051001
  2. TOPROL-XL [Concomitant]
  3. DIOVANE [Concomitant]
  4. LANOXIN [Concomitant]
  5. POTASSIUM [Concomitant]

REACTIONS (3)
  - DRUG INEFFECTIVE [None]
  - MIDDLE INSOMNIA [None]
  - SOMNOLENCE [None]
